FAERS Safety Report 18762453 (Version 1)
Quarter: 2021Q1

REPORT INFORMATION
  Report Type: Spontaneous
  Country: US (occurrence: US)
  Receive Date: 20210118
  Receipt Date: 20210118
  Transmission Date: 20210419
  Serious: Yes (Hospitalization)
  Sender: FDA-Public Use
  Company Number: None

PATIENT
  Age: 96 Year
  Sex: Female

DRUGS (3)
  1. VITAMIN K [Concomitant]
     Active Substance: PHYTONADIONE
  2. DOFETILIDE 250MCG CAP [Suspect]
     Active Substance: DOFETILIDE
     Indication: ATRIAL FIBRILLATION
     Route: 048
     Dates: start: 20190222
  3. VITAMIN D [Concomitant]
     Active Substance: VITAMIN D NOS

REACTIONS (4)
  - Product physical issue [None]
  - Blood pressure increased [None]
  - Chest pain [None]
  - Product quality issue [None]

NARRATIVE: CASE EVENT DATE: 20210116
